FAERS Safety Report 15627370 (Version 1)
Quarter: 2018Q4

REPORT INFORMATION
  Report Type: Spontaneous
  Country: None (occurrence: US)
  Receive Date: 20181116
  Receipt Date: 20181116
  Transmission Date: 20190205
  Serious: No
  Sender: FDA-Public Use
  Company Number: US-AKRON, INC.-2058949

PATIENT
  Sex: Female

DRUGS (1)
  1. METHADONE HCL INJECTION [Suspect]
     Active Substance: METHADONE HYDROCHLORIDE
     Route: 051

REACTIONS (1)
  - Drug hypersensitivity [Unknown]
